FAERS Safety Report 20714111 (Version 3)
Quarter: 2023Q1

REPORT INFORMATION
  Report Type: Spontaneous
  Country: US (occurrence: US)
  Receive Date: 20220415
  Receipt Date: 20230207
  Transmission Date: 20230418
  Serious: Yes (Hospitalization, Other)
  Sender: FDA-Public Use
  Company Number: US-PFIZER INC-2020241386

PATIENT
  Age: 79 Year
  Sex: Male
  Weight: 74.4 kg

DRUGS (1)
  1. VYNDAMAX [Suspect]
     Active Substance: TAFAMIDIS
     Indication: Amyloidosis senile
     Dosage: 61 MG, 1X/DAY
     Route: 048

REACTIONS (5)
  - Blood pressure decreased [Unknown]
  - Cardiac ablation [Unknown]
  - Aortic valve disease [Unknown]
  - Nasopharyngitis [Unknown]
  - Off label use [Unknown]
